FAERS Safety Report 5241406-0 (Version None)
Quarter: 2007Q1

REPORT INFORMATION
  Report Type: 
  Country: None (occurrence: None)
  Receive Date: 20070212
  Receipt Date: 20070131
  Transmission Date: 20070707
  Serious: Yes (Other)
  Sender: FDA-Public Use
  Company Number: GXKR2007US01304

PATIENT
  Age: 38 Year
  Sex: Male

DRUGS (10)
  1. FLUCONAZOLE [Suspect]
     Indication: PYREXIA
     Dosage: 400 MG, INTRAVENOUS
     Route: 042
  2. HYDROCHLOROTHIAZIDE [Concomitant]
  3. LOPRESSOR [Concomitant]
  4. ASPIRIN [Concomitant]
  5. AMPICILLIN [Concomitant]
  6. SALBACTAM (SULBACTAM) [Concomitant]
  7. AZITHROMYCIN [Concomitant]
  8. CO-TRIMOXAZOLE (CO-TRIMOXAZOLE) [Concomitant]
  9. VANCOMYCIN [Concomitant]
  10. IMIPENEM (IMIPENEM) [Concomitant]

REACTIONS (4)
  - ADRENAL INSUFFICIENCY [None]
  - BLOOD CORTISOL ABNORMAL [None]
  - BLOOD POTASSIUM INCREASED [None]
  - BLOOD SODIUM DECREASED [None]
